FAERS Safety Report 19013653 (Version 8)
Quarter: 2021Q4

REPORT INFORMATION
  Report Type: Report from Study
  Country: US (occurrence: US)
  Receive Date: 20210315
  Receipt Date: 20211201
  Transmission Date: 20220303
  Serious: Yes (Hospitalization, Other)
  Sender: FDA-Public Use
  Company Number: US-GILEAD-2021-0520868

PATIENT
  Age: 48 Year
  Sex: Female

DRUGS (55)
  1. REMDESIVIR [Suspect]
     Active Substance: REMDESIVIR
     Indication: COVID-19
     Dosage: UNK, QD
     Route: 042
     Dates: start: 20210209
  2. INFLIXIMAB [Suspect]
     Active Substance: INFLIXIMAB
     Indication: COVID-19
     Dosage: UNK, ONCE
     Route: 042
     Dates: start: 20210209, end: 20210209
  3. PLACEBO [Suspect]
     Active Substance: UNSPECIFIED INGREDIENT
     Indication: COVID-19
     Dosage: UNK, ONCE
     Route: 042
     Dates: start: 20210209, end: 20210209
  4. ACETAZOLAMIDE [Concomitant]
     Active Substance: ACETAZOLAMIDE
  5. ALBUMIN HUMAN [Concomitant]
     Active Substance: ALBUMIN HUMAN
  6. AMANTADINE [Concomitant]
     Active Substance: AMANTADINE
  7. AMLODIPINE [Concomitant]
     Active Substance: AMLODIPINE BESYLATE
  8. CHLORDIAZEPOXIDE [Concomitant]
     Active Substance: CHLORDIAZEPOXIDE
  9. CLONIDINE [Concomitant]
     Active Substance: CLONIDINE
  10. DEXMEDETOMIDINE [Concomitant]
     Active Substance: DEXMEDETOMIDINE
  11. ESOMEPRAZOLE [Concomitant]
     Active Substance: ESOMEPRAZOLE
  12. FENTANYL [Concomitant]
     Active Substance: FENTANYL
  13. FUROSEMIDE [Concomitant]
     Active Substance: FUROSEMIDE
  14. GABAPENTIN [Concomitant]
     Active Substance: GABAPENTIN
  15. HEPARIN [Concomitant]
     Active Substance: HEPARIN SODIUM
  16. HYDROCORTISONE SODIUM SUCCINATE [Concomitant]
     Active Substance: HYDROCORTISONE SODIUM SUCCINATE
  17. HYDROMORPHONE [Concomitant]
     Active Substance: HYDROMORPHONE
  18. INSULIN NOS [Concomitant]
     Active Substance: INSULIN NOS
  19. IPRATROPIUM [Concomitant]
     Active Substance: IPRATROPIUM
  20. LABETALOL [Concomitant]
     Active Substance: LABETALOL\LABETALOL HYDROCHLORIDE
  21. LIDOCAINE [Concomitant]
     Active Substance: LIDOCAINE
  22. MEROPENEM [Concomitant]
     Active Substance: MEROPENEM
  23. MICAFUNGIN [Concomitant]
     Active Substance: MICAFUNGIN
  24. MIDAZOLAM [Concomitant]
     Active Substance: MIDAZOLAM
  25. MODAFINIL [Concomitant]
     Active Substance: MODAFINIL
  26. NALOXONE [Concomitant]
     Active Substance: NALOXONE
  27. NICARDIPINE [Concomitant]
     Active Substance: NICARDIPINE
  28. NYSTATIN [Concomitant]
     Active Substance: NYSTATIN
  29. PHENYLEPHRINE [Concomitant]
     Active Substance: PHENYLEPHRINE HYDROCHLORIDE
  30. PIPERACILLIN AND TAZOBACTAM [Concomitant]
     Active Substance: PIPERACILLIN SODIUM\TAZOBACTAM SODIUM
  31. PROPOFOL [Concomitant]
     Active Substance: PROPOFOL
  32. RIVAROXABAN [Concomitant]
     Active Substance: RIVAROXABAN
  33. ROCURONIUM [Concomitant]
     Active Substance: ROCURONIUM BROMIDE
  34. ALBUTEROL SULFATE [Concomitant]
     Active Substance: ALBUTEROL SULFATE
  35. SODIUM CHLORIDE [Concomitant]
     Active Substance: SODIUM CHLORIDE
  36. SUMATRIPTAN [Concomitant]
     Active Substance: SUMATRIPTAN
  37. VANCOMYCIN [Concomitant]
     Active Substance: VANCOMYCIN
  38. VASOPRESSIN [Concomitant]
     Active Substance: VASOPRESSIN
  39. VORICONAZOLE [Concomitant]
     Active Substance: VORICONAZOLE
  40. CARBOXYMETHYLCELLULOSE [Concomitant]
     Active Substance: CARBOXYMETHYLCELLULOSE
  41. CEFUROXIME [Concomitant]
     Active Substance: CEFUROXIME
  42. CHLORHEXIDINE [Concomitant]
     Active Substance: CHLORHEXIDINE
  43. CLONIDINE HYDROCHLORIDE [Concomitant]
     Active Substance: CLONIDINE HYDROCHLORIDE
  44. CHOLECALCIFEROL [Concomitant]
     Active Substance: CHOLECALCIFEROL
  45. COLLAGEN [Concomitant]
     Active Substance: COLLAGEN
  46. DIPHENHYDRAMINE LAURILSULFATE [Concomitant]
  47. METHYLPHENIDATE [Concomitant]
     Active Substance: METHYLPHENIDATE
  48. ACETAMINOPHEN [Concomitant]
     Active Substance: ACETAMINOPHEN
  49. PHENAZOPYRIDINE [Concomitant]
     Active Substance: PHENAZOPYRIDINE
  50. POTASSIUM CHLORIDE [Concomitant]
     Active Substance: POTASSIUM CHLORIDE
  51. AMIKACIN [Concomitant]
     Active Substance: AMIKACIN
  52. POLYETHYLENE GLYCOL 3350 [Concomitant]
     Active Substance: POLYETHYLENE GLYCOL 3350
  53. MAGNESIUM SULFATE [Concomitant]
     Active Substance: MAGNESIUM SULFATE
  54. INULA HELENIUM ROOT;SENNA ALEXANDRINA LEAF [Concomitant]
  55. NORETHINDRONE [Concomitant]
     Active Substance: NORETHINDRONE

REACTIONS (3)
  - Posterior reversible encephalopathy syndrome [Recovered/Resolved with Sequelae]
  - Systemic inflammatory response syndrome [Recovered/Resolved]
  - Sepsis [Recovered/Resolved]

NARRATIVE: CASE EVENT DATE: 20210224
